FAERS Safety Report 15631509 (Version 2)
Quarter: 2018Q4

REPORT INFORMATION
  Report Type: Spontaneous
  Country: BR (occurrence: BR)
  Receive Date: 20181119
  Receipt Date: 20181126
  Transmission Date: 20190205
  Serious: Yes (Hospitalization, Other)
  Sender: FDA-Public Use
  Company Number: BR-TORRENT-00004716

PATIENT
  Sex: Female

DRUGS (1)
  1. TORLOS [Suspect]
     Active Substance: LOSARTAN POTASSIUM
     Indication: PRODUCT USED FOR UNKNOWN INDICATION
     Dosage: CONVULSIVE CRISIS AFTER ?TAKING TWO TABLETS

REACTIONS (1)
  - Seizure [Unknown]
